FAERS Safety Report 5331294-6 (Version None)
Quarter: 2007Q2

REPORT INFORMATION
  Report Type: 
  Country: None (occurrence: None)
  Receive Date: 20070301
  Receipt Date: 20060719
  Transmission Date: 20071010
  Serious: Yes (Hospitalization)
  Sender: FDA-Public Use
  Company Number: 2884

PATIENT
  Age: 14 Year
  Sex: Female

DRUGS (1)
  1. AMNESTEEM [Suspect]
     Indication: ACNE
     Dosage: 60 MG, QD, PO
     Route: 048
     Dates: end: 20060530

REACTIONS (2)
  - EPISTAXIS [None]
  - THROMBOCYTOPENIC PURPURA [None]
